FAERS Safety Report 8586160-X (Version None)
Quarter: 2012Q3

REPORT INFORMATION
  Report Type: 
  Country: None (occurrence: None)
  Receive Date: 20120810
  Receipt Date: 20120808
  Transmission Date: 20120928
  Serious: Yes (Other)
  Sender: FDA-Public Use
  Company Number: US-GLAXOSMITHKLINE-A0988780A

PATIENT
  Sex: Male

DRUGS (13)
  1. VOTRIENT [Suspect]
     Indication: RENAL CELL CARCINOMA
     Dosage: 800MG PER DAY
     Route: 048
     Dates: start: 20111205
  2. OMEPRAZOLE [Concomitant]
  3. COQ10 [Concomitant]
  4. VITAMIN TAB [Concomitant]
  5. ATIVAN [Concomitant]
  6. LOVAZA [Concomitant]
  7. CETIRIZINE [Concomitant]
  8. MAGNESIUM [Concomitant]
  9. COMPAZINE [Concomitant]
  10. VITAMIN D [Concomitant]
  11. ONDANSETRON [Concomitant]
  12. RITALIN [Concomitant]
  13. CALCIUM [Concomitant]

REACTIONS (1)
  - RETINAL VEIN THROMBOSIS [None]
